FAERS Safety Report 9200164 (Version 1)
Quarter: 2013Q1

REPORT INFORMATION
  Report Type: Spontaneous
  Country: JP (occurrence: JP)
  Receive Date: 20130329
  Receipt Date: 20130329
  Transmission Date: 20140127
  Serious: Yes (Other)
  Sender: FDA-Public Use
  Company Number: JP-ROCHE-1193509

PATIENT
  Sex: Female
  Weight: 43 kg

DRUGS (5)
  1. MIRCERA [Suspect]
     Indication: NEPHROGENIC ANAEMIA
     Route: 058
     Dates: start: 20120719, end: 201211
  2. NESP [Suspect]
     Indication: NEPHROGENIC ANAEMIA
     Dosage: DOSAGE IS UNCERTAIN.
     Route: 042
  3. FERROMIA [Concomitant]
     Dosage: DOSAGE IS UNCERTAIN.
     Route: 048
  4. PERSANTIN [Concomitant]
     Route: 048
  5. LASIX [Concomitant]
     Route: 048

REACTIONS (1)
  - Platelet count decreased [Unknown]
